FAERS Safety Report 19665256 (Version 2)
Quarter: 2021Q3

REPORT INFORMATION
  Report Type: Spontaneous
  Country: US (occurrence: US)
  Receive Date: 20210805
  Receipt Date: 20210805
  Transmission Date: 20211014
  Serious: No
  Sender: FDA-Public Use
  Company Number: US-ROCHE-2806718

PATIENT
  Age: 37 Year
  Sex: Female

DRUGS (1)
  1. GAVRETO [Suspect]
     Active Substance: PRALSETINIB
     Indication: THYROID CANCER
     Route: 048
     Dates: start: 20210317

REACTIONS (6)
  - Musculoskeletal stiffness [Unknown]
  - Gait disturbance [Unknown]
  - Hypoaesthesia oral [Unknown]
  - Pain in extremity [Unknown]
  - Ageusia [Unknown]
  - Fatigue [Unknown]

NARRATIVE: CASE EVENT DATE: 20210324
